FAERS Safety Report 21828794 (Version 1)
Quarter: 2023Q1

REPORT INFORMATION
  Report Type: Spontaneous
  Country: US (occurrence: None)
  Receive Date: 20230105
  Receipt Date: 20230105
  Transmission Date: 20230417
  Serious: Yes (Hospitalization)
  Sender: FDA-Public Use
  Company Number: None

PATIENT
  Sex: Male

DRUGS (8)
  1. HUMIRA [Suspect]
     Active Substance: ADALIMUMAB
     Dosage: OTHER QUANTITY : 40 MG/0.8ML;?
     Route: 058
  2. ATORVASTATIN [Concomitant]
  3. LISINOPRIL AND HYDROCHLOROTHIAZIDE [Concomitant]
     Active Substance: HYDROCHLOROTHIAZIDE\LISINOPRIL
  4. NAPROXEN [Concomitant]
  5. OXYCODONE [Concomitant]
  6. ASPIRIN [Concomitant]
  7. TERBINAFINE [Concomitant]
  8. TRAZODONE [Concomitant]

REACTIONS (2)
  - Surgery [None]
  - Therapy interrupted [None]
